FAERS Safety Report 6594076-3 (Version None)
Quarter: 2010Q1

REPORT INFORMATION
  Report Type: 
  Country: None (occurrence: None)
  Receive Date: 20100222
  Receipt Date: 20100211
  Transmission Date: 20100710
  Serious: Yes (Death, Life-Threatening)
  Sender: FDA-Public Use
  Company Number: DE-ROCHE-652457

PATIENT
  Sex: Male
  Weight: 100 kg

DRUGS (1)
  1. BEVACIZUMAB [Suspect]
     Indication: COLORECTAL CANCER
     Route: 042
     Dates: start: 20090331, end: 20090805

REACTIONS (3)
  - INFLAMMATION [None]
  - INTESTINAL PERFORATION [None]
  - PERITONITIS [None]
